APPROVED DRUG PRODUCT: CYTARABINE
Active Ingredient: CYTARABINE
Strength: 100MG/ML
Dosage Form/Route: INJECTABLE;INJECTION
Application: A076512 | Product #001 | TE Code: AP
Applicant: FRESENIUS KABI USA LLC
Approved: Jan 15, 2004 | RLD: No | RS: Yes | Type: RX